FAERS Safety Report 23234609 (Version 1)
Quarter: 2023Q4

REPORT INFORMATION
  Report Type: Spontaneous
  Country: US (occurrence: US)
  Receive Date: 20231128
  Receipt Date: 20231128
  Transmission Date: 20240109
  Serious: Yes (Other)
  Sender: FDA-Public Use
  Company Number: US-BAYER-2023A166818

PATIENT
  Age: 51 Year
  Sex: Male

DRUGS (2)
  1. MIRALAX [Suspect]
     Active Substance: POLYETHYLENE GLYCOL 3350
     Indication: Product used for unknown indication
     Dosage: 238 G DRINK EVERY 15 MINUTES
     Route: 048
     Dates: start: 20231120, end: 20231120
  2. MIRALAX [Suspect]
     Active Substance: POLYETHYLENE GLYCOL 3350
     Indication: Colonoscopy

REACTIONS (4)
  - Haematemesis [Unknown]
  - Vomiting [Unknown]
  - Tremor [Unknown]
  - Off label use [Unknown]
